FAERS Safety Report 18764935 (Version 3)
Quarter: 2021Q2

REPORT INFORMATION
  Report Type: Spontaneous
  Country: US (occurrence: US)
  Receive Date: 20210121
  Receipt Date: 20210506
  Transmission Date: 20210717
  Serious: Yes (Other)
  Sender: FDA-Public Use
  Company Number: US-ROCHE-2734139

PATIENT
  Sex: Male

DRUGS (2)
  1. CAPECITABINE. [Suspect]
     Active Substance: CAPECITABINE
     Indication: PRODUCT USED FOR UNKNOWN INDICATION
     Route: 065
  2. TUKYSA [Suspect]
     Active Substance: TUCATINIB
     Indication: BREAST CANCER MALE
     Route: 065

REACTIONS (13)
  - Vision blurred [Unknown]
  - Salivary gland enlargement [Unknown]
  - Ear discomfort [Unknown]
  - Fatigue [Unknown]
  - Hypoacusis [Unknown]
  - Product dose omission issue [Unknown]
  - Weight decreased [Unknown]
  - Fall [Unknown]
  - Nausea [Unknown]
  - Dehydration [Unknown]
  - Metastases to meninges [Unknown]
  - Vomiting [Unknown]
  - Asthenia [Unknown]
